FAERS Safety Report 10136976 (Version 1)
Quarter: 2014Q2

REPORT INFORMATION
  Report Type: Spontaneous
  Country: JP (occurrence: JP)
  Receive Date: 20140429
  Receipt Date: 20140429
  Transmission Date: 20141212
  Serious: Yes (Death, Hospitalization, Other)
  Sender: FDA-Public Use
  Company Number: JP-ROCHE-1387532

PATIENT
  Age: 67 Year
  Sex: Male

DRUGS (2)
  1. AVASTIN [Suspect]
     Indication: ANGIOSARCOMA
     Route: 041
  2. DOCETAXEL [Concomitant]
     Indication: ANGIOSARCOMA
     Dosage: DOSAGE IS UNCERTAIN.
     Route: 041

REACTIONS (6)
  - Asthenia [Fatal]
  - Gastric ulcer [Unknown]
  - Tumour haemorrhage [Unknown]
  - Tumour ulceration [Unknown]
  - Interstitial lung disease [Unknown]
  - Pleural effusion [Unknown]
